FAERS Safety Report 8839454 (Version 1)
Quarter: 2012Q4

REPORT INFORMATION
  Report Type: 
  Country: GB (occurrence: GB)
  Receive Date: 20121015
  Receipt Date: 20121015
  Transmission Date: 20130627
  Serious: Yes (Life-Threatening, Disabling, Other)
  Sender: FDA-Public Use
  Company Number: GB-MYLANLABS-2012S1020505

PATIENT
  Age: 50 Year
  Sex: Female

DRUGS (5)
  1. RISPERIDONE [Suspect]
     Indication: ABNORMAL BEHAVIOUR
     Dosage: dosage of risperidone was increased by 0.25mg to 0.75mg daily
     Route: 048
     Dates: start: 20080924
  2. RISPERIDONE [Suspect]
     Indication: ABNORMAL BEHAVIOUR
     Dosage: 0.75 mg + 0.5 mg
     Route: 048
     Dates: start: 20110120, end: 20110124
  3. RISPERIDONE [Suspect]
     Indication: ABNORMAL BEHAVIOUR
     Route: 048
     Dates: start: 20110124
  4. RISPERIDONE [Suspect]
     Indication: ABNORMAL BEHAVIOUR
     Route: 048
     Dates: start: 200903
  5. BOTOX [Suspect]
     Indication: PRODUCT USED FOR UNKNOWN INDICATION

REACTIONS (15)
  - Extrapyramidal disorder [Not Recovered/Not Resolved]
  - Confusional state [Not Recovered/Not Resolved]
  - Dyspnoea [Not Recovered/Not Resolved]
  - Emotional distress [Unknown]
  - Pleurothotonus [Not Recovered/Not Resolved]
  - Sedation [Not Recovered/Not Resolved]
  - Sydenham^s chorea [Unknown]
  - Staphylococcal infection [Unknown]
  - Agitation [Unknown]
  - Mood swings [Unknown]
  - Gastrointestinal obstruction [Unknown]
  - Clostridium difficile infection [Unknown]
  - Drug interaction [Unknown]
  - Psychotic disorder [Unknown]
  - Incontinence [Unknown]
